FAERS Safety Report 6284873-6 (Version None)
Quarter: 2009Q3

REPORT INFORMATION
  Report Type: 
  Country: None (occurrence: None)
  Receive Date: 20090727
  Receipt Date: 20090717
  Transmission Date: 20100115
  Serious: Yes (Disabling)
  Sender: FDA-Public Use
  Company Number: B0582245A

PATIENT
  Sex: Female

DRUGS (1)
  1. SERETIDE [Suspect]
     Indication: ASTHMA
     Route: 055
     Dates: start: 20070721

REACTIONS (3)
  - HYPOAESTHESIA ORAL [None]
  - ORAL DISCOMFORT [None]
  - PRODUCT QUALITY ISSUE [None]
